FAERS Safety Report 5508880-3 (Version None)
Quarter: 2007Q4

REPORT INFORMATION
  Report Type: 
  Country: None (occurrence: None)
  Receive Date: 20071031
  Receipt Date: 20070828
  Transmission Date: 20080405
  Serious: Yes (Hospitalization)
  Sender: FDA-Public Use
  Company Number: 200712717BWH

PATIENT
  Age: 71 Year
  Sex: Male

DRUGS (4)
  1. NEXAVAR [Suspect]
     Indication: HEPATIC CANCER METASTATIC
     Dosage: 400 MG, BID, ORAL
     Route: 048
     Dates: start: 20070701
  2. NEXAVAR [Suspect]
     Indication: METASTASES TO ADRENALS
     Dosage: 400 MG, BID, ORAL
     Route: 048
     Dates: start: 20070701
  3. UNKNOWN MEDICATION FOR HYPERTENSION [Concomitant]
  4. UNKNOWN MEDICATION FOR DIABETES [Concomitant]

REACTIONS (2)
  - EPISTAXIS [None]
  - HAEMATOCHEZIA [None]
